FAERS Safety Report 9768615 (Version 1)
Quarter: 2013Q4

REPORT INFORMATION
  Report Type: Spontaneous
  Country: MY (occurrence: MY)
  Receive Date: 20131218
  Receipt Date: 20131218
  Transmission Date: 20140711
  Serious: Yes (Other)
  Sender: FDA-Public Use
  Company Number: MY-PFIZER INC-2013354644

PATIENT
  Sex: Female

DRUGS (1)
  1. NORVASC [Suspect]
     Dosage: UNK

REACTIONS (7)
  - Diabetes mellitus [Unknown]
  - Vomiting [Unknown]
  - Asthenia [Unknown]
  - Gastric disorder [Unknown]
  - Pyrexia [Unknown]
  - Cough [Unknown]
  - Weight decreased [Unknown]
